FAERS Safety Report 18972819 (Version 2)
Quarter: 2021Q1

REPORT INFORMATION
  Report Type: Report from Study
  Country: None (occurrence: CA)
  Receive Date: 20210305
  Receipt Date: 20210330
  Transmission Date: 20210420
  Serious: No
  Sender: FDA-Public Use
  Company Number: CA-ABBVIE-21K-028-3798240-00

PATIENT
  Age: 68 Year
  Sex: Male
  Weight: 90.2 kg

DRUGS (10)
  1. SKYRIZI [Suspect]
     Active Substance: RISANKIZUMAB-RZAA
     Route: 058
     Dates: start: 20210204
  2. TRAMADOL ACET [Concomitant]
     Indication: BACK PAIN
     Dosage: AS NEEDED
     Route: 048
     Dates: start: 2019
  3. ENSTILAR [Concomitant]
     Active Substance: BETAMETHASONE DIPROPIONATE\CALCIPOTRIENE HYDRATE
     Indication: PRODUCT USED FOR UNKNOWN INDICATION
     Dosage: 0.5/50
     Dates: start: 202004, end: 20201115
  4. ENSTILAR 0.5/50 [Concomitant]
     Indication: PSORIASIS
     Dosage: 1 APPLICATION
     Route: 061
     Dates: start: 202004
  5. PRAVASTATIN. [Concomitant]
     Active Substance: PRAVASTATIN
     Indication: DYSLIPIDAEMIA
     Route: 048
     Dates: start: 2016
  6. PANTOPRAZOLE [Concomitant]
     Active Substance: PANTOPRAZOLE
     Indication: GASTROINTESTINAL DISORDER PROPHYLAXIS
     Route: 048
     Dates: start: 2016
  7. SKYRIZI [Suspect]
     Active Substance: RISANKIZUMAB-RZAA
     Indication: PSORIASIS
     Route: 058
     Dates: start: 20201023, end: 20201023
  8. AAS 10%+ TOPIZONE [Concomitant]
     Indication: PSORIASIS
     Dosage: 1 APPLICATION, AS NEEDED
     Route: 061
     Dates: start: 202003, end: 20201115
  9. ACETYLSALICYLIC ACID [Concomitant]
     Active Substance: ASPIRIN
     Indication: CARDIOVASCULAR EVENT PROPHYLAXIS
     Route: 048
     Dates: start: 2016
  10. EZETIMIBE. [Concomitant]
     Active Substance: EZETIMIBE
     Indication: DYSLIPIDAEMIA
     Route: 048
     Dates: start: 202005

REACTIONS (1)
  - Muscle spasms [Recovered/Resolved]

NARRATIVE: CASE EVENT DATE: 20210101
